FAERS Safety Report 8709649 (Version 3)
Quarter: 2012Q4

REPORT INFORMATION
  Report Type: Report from Study
  Country: AU (occurrence: AU)
  Receive Date: 20120806
  Receipt Date: 20120910
  Transmission Date: 20130627
  Serious: Yes (Other)
  Sender: FDA-Public Use
  Company Number: AU-GLAXOSMITHKLINE-B0820413A

PATIENT
  Age: 78 Year
  Sex: Female

DRUGS (7)
  1. TYKERB [Suspect]
     Indication: BREAST CANCER METASTATIC
     Dosage: 1000MG At night
     Route: 065
     Dates: start: 20120720
  2. XELODA [Suspect]
     Indication: BREAST CANCER METASTATIC
     Dosage: 2000MG per day
     Route: 065
     Dates: start: 20120720, end: 20120723
  3. RALTITREXED [Suspect]
     Indication: PRODUCT USED FOR UNKNOWN INDICATION
     Route: 065
  4. ONDANSETRON [Suspect]
     Indication: PRODUCT USED FOR UNKNOWN INDICATION
     Route: 065
  5. PHENERGAN [Concomitant]
  6. DEXAMETHASONE [Concomitant]
  7. COLOXYL [Concomitant]

REACTIONS (5)
  - Arteriospasm coronary [Not Recovered/Not Resolved]
  - Rash pruritic [Not Recovered/Not Resolved]
  - Fatigue [Not Recovered/Not Resolved]
  - Constipation [Recovered/Resolved]
  - Abdominal pain upper [Recovered/Resolved]
